FAERS Safety Report 4778398-4 (Version None)
Quarter: 2005Q3

REPORT INFORMATION
  Report Type: 
  Country: None (occurrence: None)
  Receive Date: 20050926
  Receipt Date: 20050913
  Transmission Date: 20060218
  Serious: Yes (Other)
  Sender: FDA-Public Use
  Company Number: TW-JNJFOC-20050903654

PATIENT
  Age: 62 Year
  Sex: Female

DRUGS (1)
  1. DECARIS [Suspect]

REACTIONS (1)
  - LEUKOENCEPHALOPATHY [None]
